FAERS Safety Report 25099532 (Version 1)
Quarter: 2025Q1

REPORT INFORMATION
  Report Type: Spontaneous
  Country: GB (occurrence: GB)
  Receive Date: 20250320
  Receipt Date: 20250320
  Transmission Date: 20250409
  Serious: Yes (Other)
  Sender: SUNOVION
  Company Number: GB-MHRA-TPP25751619C11334571YC1741257121485

PATIENT

DRUGS (6)
  1. VIBEGRON [Suspect]
     Active Substance: VIBEGRON
     Indication: Ill-defined disorder
     Dosage: 75 MG, TAKE ONE DAILY
     Route: 065
     Dates: start: 20250210
  2. CALCIPOTRIENE [Concomitant]
     Active Substance: CALCIPOTRIENE
     Indication: Ill-defined disorder
     Dosage: 1 APPLICATION, QD (1/DAY)
     Route: 065
  3. COAL TAR\COCONUT OIL\SALICYLIC ACID [Concomitant]
     Active Substance: COAL TAR\COCONUT OIL\SALICYLIC ACID
     Indication: Ill-defined disorder
     Route: 065
     Dates: start: 20250217, end: 20250218
  4. MELOXICAM [Concomitant]
     Active Substance: MELOXICAM
     Indication: Ill-defined disorder
     Route: 065
     Dates: start: 20230413
  5. OMEPRAZOLE [Concomitant]
     Active Substance: OMEPRAZOLE
     Indication: Ill-defined disorder
     Dosage: 1 DF, QD (1/DAY); TAKE ONE CAPSULE ONCE DAILY WHILE TAKING MELOXICAM
     Route: 065
     Dates: start: 20230413
  6. AMLODIPINE [Concomitant]
     Active Substance: AMLODIPINE BESYLATE
     Indication: Ill-defined disorder
     Route: 065
     Dates: start: 20240103

REACTIONS (3)
  - Blood pressure increased [Recovering/Resolving]
  - Diarrhoea [Recovering/Resolving]
  - Nausea [Recovered/Resolved]
